FAERS Safety Report 18196509 (Version 1)
Quarter: 2020Q3

REPORT INFORMATION
  Report Type: Report from Study
  Country: None (occurrence: SI)
  Receive Date: 20200825
  Receipt Date: 20200825
  Transmission Date: 20201103
  Serious: Yes (Life-Threatening)
  Sender: FDA-Public Use
  Company Number: SI-ABBVIE-20K-261-3538818-00

PATIENT
  Age: 77 Year
  Sex: Female
  Weight: 50 kg

DRUGS (4)
  1. DUODOPA [Suspect]
     Active Substance: CARBIDOPA\LEVODOPA
     Indication: PARKINSON^S DISEASE
     Route: 050
     Dates: start: 20170526
  2. RIVOTRIL [Concomitant]
     Active Substance: CLONAZEPAM
     Indication: PRODUCT USED FOR UNKNOWN INDICATION
     Dates: start: 2018
  3. DUODOPA [Suspect]
     Active Substance: CARBIDOPA\LEVODOPA
  4. EXELON [Concomitant]
     Active Substance: RIVASTIGMINE TARTRATE
     Indication: PRODUCT USED FOR UNKNOWN INDICATION
     Dosage: PATCHES
     Dates: start: 2017

REACTIONS (3)
  - Salmonellosis [Recovered/Resolved]
  - Immobile [Unknown]
  - Dehydration [Unknown]

NARRATIVE: CASE EVENT DATE: 20200805
